FAERS Safety Report 7087936-0 (Version None)
Quarter: 2010Q4

REPORT INFORMATION
  Report Type: 
  Country: None (occurrence: None)
  Receive Date: 20101108
  Receipt Date: 20101029
  Transmission Date: 20110411
  Serious: Yes (Hospitalization, Other)
  Sender: FDA-Public Use
  Company Number: CA-US-EMD SERONO, INC.-230287K09CAN

PATIENT
  Sex: Female

DRUGS (9)
  1. REBIF [Suspect]
     Indication: RELAPSING-REMITTING MULTIPLE SCLEROSIS
     Dates: start: 20020903, end: 20080101
  2. REBIF [Suspect]
     Dates: start: 20090209
  3. ALENDRONATE SODIUM [Concomitant]
     Indication: OSTEOPOROSIS
  4. CRESTOR [Concomitant]
  5. TEGRETOL [Concomitant]
  6. SYNTHROID [Concomitant]
  7. CALCIUM [Concomitant]
  8. TYLENOL EXTRA STRENGTH [Concomitant]
  9. AD (NATURAL CHINESE PRODUCT) [Concomitant]
     Indication: LIVER DISORDER

REACTIONS (11)
  - ASTHENIA [None]
  - DIZZINESS [None]
  - FALL [None]
  - GLAUCOMA [None]
  - HEADACHE [None]
  - INJECTION SITE MASS [None]
  - INJECTION SITE PAIN [None]
  - MULTIPLE SCLEROSIS RELAPSE [None]
  - PAIN [None]
  - SINUSITIS [None]
  - THYROID MASS [None]
